FAERS Safety Report 4491618-9 (Version None)
Quarter: 2004Q4

REPORT INFORMATION
  Report Type: 
  Country: None (occurrence: None)
  Receive Date: 20041101
  Receipt Date: 20041019
  Transmission Date: 20050328
  Serious: Yes (Hospitalization)
  Sender: FDA-Public Use
  Company Number: 2004081383

PATIENT
  Age: 75 Year
  Sex: Female
  Weight: 60 kg

DRUGS (10)
  1. NORVASC [Suspect]
     Indication: HYPERTENSION
     Dosage: 5 MG (5 MG, 1 IN 1 D), ORAL
     Route: 048
  2. CITALOPRAM HYDROBROMIDE [Suspect]
     Indication: DEPRESSION
     Dosage: 20 MG (20 MG, 1 IN 1 D), ORAL
     Route: 048
     Dates: start: 20030901
  3. AMIODARONE HCL [Suspect]
     Indication: ATRIAL FIBRILLATION
     Dosage: 400 MG (200 MG, 2 IN 1 D), ORAL
     Route: 048
     Dates: start: 20040720, end: 20040727
  4. DIGITOXIN TAB [Suspect]
     Indication: ATRIAL FIBRILLATION
     Dosage: 0.07 MG (0.07 MG, 1 IN 1 D), ORAL
     Route: 048
     Dates: start: 20020101, end: 20040727
  5. CELECOXIB (CELECOXIB) [Concomitant]
  6. CLOPIDOGREL (CLOPIDOGREL) [Concomitant]
  7. FLUPIRTINE MALEATE (FLUPIRTINE MALEATE) [Concomitant]
  8. LOSARTAN POTASSIUM [Concomitant]
  9. RANITIDINE HYDROCHLORIDE [Concomitant]
  10. VALORON N (NALOXONE HYDROCHLORIDE, TILIDINE HYDROCHLORIDE) [Concomitant]

REACTIONS (10)
  - ATRIAL FIBRILLATION [None]
  - BRADYCARDIA [None]
  - CATHETERISATION CARDIAC ABNORMAL [None]
  - CORONARY ARTERY STENOSIS [None]
  - DRUG INTERACTION [None]
  - DYSPNOEA AT REST [None]
  - ELECTROCARDIOGRAM ABNORMAL [None]
  - ELECTROCARDIOGRAM REPOLARISATION ABNORMALITY [None]
  - EXTRASYSTOLES [None]
  - SINOATRIAL BLOCK [None]
